FAERS Safety Report 14582961 (Version 1)
Quarter: 2018Q1

REPORT INFORMATION
  Report Type: Spontaneous
  Country: US (occurrence: US)
  Receive Date: 20180227
  Receipt Date: 20180227
  Transmission Date: 20180509
  Serious: Yes (Disabling)
  Sender: FDA-Public Use
  Company Number: None

PATIENT
  Age: 45 Year
  Sex: Female
  Weight: 94.95 kg

DRUGS (7)
  1. AMITRIPTYLINE 10MG [Concomitant]
     Active Substance: AMITRIPTYLINE
     Dates: start: 20170412
  2. LEVOTHYROXINE 150MCG [Concomitant]
     Dates: start: 20080101
  3. SUMATRIPTAN 50MG [Concomitant]
     Active Substance: SUMATRIPTAN
     Dates: start: 20170308
  4. SPIRONOLACTONE 100MG [Concomitant]
     Active Substance: SPIRONOLACTONE
     Dates: start: 20080101
  5. GLATIRAMER [Suspect]
     Active Substance: GLATIRAMER
     Indication: MULTIPLE SCLEROSIS
     Dosage: ?          OTHER FREQUENCY:3 X WEEKLY;?
     Route: 058
     Dates: start: 20180109, end: 20180227
  6. METFORMIN 500MG [Concomitant]
     Active Substance: METFORMIN HYDROCHLORIDE
     Dates: start: 20081002
  7. LORAZEPAM 0.5MG [Concomitant]
     Active Substance: LORAZEPAM
     Dates: start: 20080101

REACTIONS (9)
  - Product substitution issue [None]
  - Muscle twitching [None]
  - Flushing [None]
  - Hypoaesthesia [None]
  - Cognitive disorder [None]
  - Dizziness [None]
  - Injection site reaction [None]
  - Muscle spasms [None]
  - Feeling abnormal [None]

NARRATIVE: CASE EVENT DATE: 20180213
